FAERS Safety Report 10392232 (Version 16)
Quarter: 2020Q3

REPORT INFORMATION
  Report Type: Other
  Country: BR (occurrence: BR)
  Receive Date: 20140819
  Receipt Date: 20200924
  Transmission Date: 20201102
  Serious: Yes (Other)
  Sender: FDA-Public Use
  Company Number: BR-ROCHE-1401352

PATIENT
  Age: 67 Year
  Sex: Female
  Weight: 86 kg

DRUGS (17)
  1. ACTEMRA [Suspect]
     Active Substance: TOCILIZUMAB
     Indication: RHEUMATOID ARTHRITIS
     Dosage: THE MOST RECENT INFUSION WAS ON 16/JUL2/014.?MOST RECENT INFUSION OF ACTEMRA ON 02/JAN/2019.
     Route: 042
     Dates: start: 20111227, end: 201407
  2. ACTEMRA [Suspect]
     Active Substance: TOCILIZUMAB
     Route: 042
     Dates: start: 201112
  3. ACTEMRA [Suspect]
     Active Substance: TOCILIZUMAB
     Dosage: RECENT INFUSION PRIOR TO ADVERSE EVENT
     Route: 042
     Dates: start: 201504
  4. ACTEMRA [Suspect]
     Active Substance: TOCILIZUMAB
     Dosage: RECENT INFUSION PRIOR TO ADVERSE EVENT
     Route: 042
     Dates: start: 201506
  5. METHOTREXATE. [Concomitant]
     Active Substance: METHOTREXATE
  6. CORTISONE [Suspect]
     Active Substance: CORTISONE
     Indication: PRODUCT USED FOR UNKNOWN INDICATION
     Route: 065
  7. CHONDROITIN [Concomitant]
     Active Substance: CHONDROITIN
  8. HARPAGOPHYTUM PROCUMBENS [Concomitant]
     Active Substance: HARPAGOPHYTUM PROCUMBENS ROOT\HERBALS
  9. HYDROXYCHLOROQUINE [Suspect]
     Active Substance: HYDROXYCHLOROQUINE
     Indication: JOINT SWELLING
     Dosage: HALF TABLET
     Route: 065
  10. SALAZOPYRIN [Suspect]
     Active Substance: SULFASALAZINE
     Indication: RHEUMATOID ARTHRITIS
     Route: 065
  11. ACTEMRA [Suspect]
     Active Substance: TOCILIZUMAB
     Dosage: RECENT INFUSION PRIOR TO ADVERSE EVENT
     Route: 042
     Dates: start: 201503
  12. ACTEMRA [Suspect]
     Active Substance: TOCILIZUMAB
     Dosage: RECENT INFUSION PRIOR TO ADVERSE EVENT
     Route: 042
     Dates: start: 201505
  13. ALENIA (BRAZIL) [Concomitant]
     Active Substance: BUDESONIDE\FORMOTEROL FUMARATE
     Indication: DYSPNOEA
     Dosage: 12/400 MG
  14. ULTRACET [Concomitant]
     Active Substance: ACETAMINOPHEN\TRAMADOL HYDROCHLORIDE
     Indication: PAIN
  15. ACTEMRA [Suspect]
     Active Substance: TOCILIZUMAB
     Dosage: MONTHLY DOSAGE: 680MG
     Route: 042
     Dates: start: 20111110
  16. ATACAND [Concomitant]
     Active Substance: CANDESARTAN CILEXETIL
     Indication: HYPERTENSION
  17. ARADOIS [Concomitant]
     Active Substance: LOSARTAN POTASSIUM
     Indication: HYPERTENSION

REACTIONS (43)
  - Rheumatoid factor increased [Recovered/Resolved]
  - Pain in extremity [Not Recovered/Not Resolved]
  - Arthralgia [Recovered/Resolved]
  - Hepatomegaly [Recovering/Resolving]
  - Muscular weakness [Not Recovered/Not Resolved]
  - Arthralgia [Not Recovered/Not Resolved]
  - Tenosynovitis [Unknown]
  - Hepatic steatosis [Recovering/Resolving]
  - Deafness unilateral [Recovering/Resolving]
  - Vein disorder [Not Recovered/Not Resolved]
  - Bone disorder [Not Recovered/Not Resolved]
  - Headache [Recovered/Resolved]
  - Nausea [Recovered/Resolved]
  - Hand deformity [Unknown]
  - Drug hypersensitivity [Unknown]
  - Joint dislocation [Not Recovered/Not Resolved]
  - Blood urea increased [Unknown]
  - Spinal disorder [Recovering/Resolving]
  - Fatigue [Recovering/Resolving]
  - Gait disturbance [Unknown]
  - Asthenia [Unknown]
  - Weight decreased [Unknown]
  - Body height decreased [Unknown]
  - Dizziness [Recovered/Resolved]
  - Arthritis [Recovering/Resolving]
  - Blood pressure increased [Unknown]
  - Mobility decreased [Not Recovered/Not Resolved]
  - Ear infection [Recovering/Resolving]
  - Weight decreased [Not Recovered/Not Resolved]
  - Hepatic steatosis [Recovered/Resolved]
  - Influenza [Recovered/Resolved]
  - Red blood cell sedimentation rate increased [Unknown]
  - Finger deformity [Not Recovered/Not Resolved]
  - Choking [Recovered/Resolved]
  - Spinal pain [Not Recovered/Not Resolved]
  - C-reactive protein increased [Unknown]
  - Skin discolouration [Recovering/Resolving]
  - Pain [Not Recovered/Not Resolved]
  - Joint swelling [Not Recovered/Not Resolved]
  - Hand fracture [Unknown]
  - Back pain [Not Recovered/Not Resolved]
  - Pain [Recovering/Resolving]
  - Erythema [Recovering/Resolving]

NARRATIVE: CASE EVENT DATE: 2014
